FAERS Safety Report 21902025 (Version 1)
Quarter: 2023Q1

REPORT INFORMATION
  Report Type: Spontaneous
  Country: FR (occurrence: FR)
  Receive Date: 20230124
  Receipt Date: 20230124
  Transmission Date: 20230418
  Serious: Yes (Congenital Anomaly)
  Sender: FDA-Public Use
  Company Number: None

PATIENT
  Age: 0 Day
  Sex: Female
  Weight: 3.28 kg

DRUGS (7)
  1. LATANOPROST [Suspect]
     Active Substance: LATANOPROST
     Indication: Foetal exposure during pregnancy
     Route: 064
     Dates: start: 20210117, end: 20211003
  2. DORZOLAMIDE HYDROCHLORIDE\TIMOLOL MALEATE [Suspect]
     Active Substance: DORZOLAMIDE HYDROCHLORIDE\TIMOLOL MALEATE
     Indication: Foetal exposure during pregnancy
     Route: 064
     Dates: start: 20210117, end: 20211003
  3. VENOFER [Concomitant]
     Active Substance: IRON SUCROSE
     Indication: Foetal exposure during pregnancy
     Route: 064
     Dates: start: 20210807, end: 20210807
  4. VENOFER [Concomitant]
     Active Substance: IRON SUCROSE
     Indication: Foetal exposure during pregnancy
     Route: 064
     Dates: start: 20210817, end: 20210817
  5. VENOFER [Concomitant]
     Active Substance: IRON SUCROSE
     Indication: Foetal exposure during pregnancy
     Route: 064
     Dates: start: 20210809, end: 20210809
  6. BETAMETHASONE [Concomitant]
     Active Substance: BETAMETHASONE
     Indication: Foetal exposure during pregnancy
     Route: 064
     Dates: start: 20210808, end: 20210808
  7. NIFEDIPINE MYLAN L.P. 20 mg, comprim? ? lib?ration prolong?e [Concomitant]
     Indication: Foetal exposure during pregnancy
     Route: 064
     Dates: start: 20210807, end: 20210809

REACTIONS (2)
  - Cystic lymphangioma [Not Recovered/Not Resolved]
  - Lip injury [Not Recovered/Not Resolved]

NARRATIVE: CASE EVENT DATE: 20211003
